FAERS Safety Report 22111598 (Version 1)
Quarter: 2023Q1

REPORT INFORMATION
  Report Type: Spontaneous
  Country: RU (occurrence: RU)
  Receive Date: 20230318
  Receipt Date: 20230318
  Transmission Date: 20230417
  Serious: Yes (Hospitalization, Other)
  Sender: FDA-Public Use
  Company Number: RU-MACLEODS PHARMACEUTICALS US LTD-MAC2023040275

PATIENT

DRUGS (4)
  1. LEVOFLOXACIN [Suspect]
     Active Substance: LEVOFLOXACIN
     Indication: Glomerulonephritis acute
     Dosage: UNK, (START DATE: UNKNOWN DATE IN 2021)
     Route: 065
  2. Valsartan/ Hydrochlorothiazide [Concomitant]
     Indication: Glomerulonephritis acute
     Dosage: 1 DOSAGE FORM, QD, 80/12.5 MG PER DAY, START DATE: UNKNOWN DATE IN 2021
     Route: 065
  3. WARFARIN [Concomitant]
     Active Substance: WARFARIN
     Indication: Product used for unknown indication
     Dosage: UNK
     Route: 065
  4. WARFARIN [Concomitant]
     Active Substance: WARFARIN
     Dosage: 40 MILLIGRAM, QD
     Route: 065

REACTIONS (1)
  - Nephropathy toxic [Recovered/Resolved]
